FAERS Safety Report 16273402 (Version 1)
Quarter: 2019Q2

REPORT INFORMATION
  Report Type: Spontaneous
  Country: PL (occurrence: PL)
  Receive Date: 20190506
  Receipt Date: 20190506
  Transmission Date: 20190711
  Serious: Yes (Other)
  Sender: FDA-Public Use
  Company Number: PL-AUROBINDO-AUR-APL-2019-024580

PATIENT

DRUGS (2)
  1. UNIDOX [Interacting]
     Active Substance: DOXYCYCLINE
     Indication: PRODUCT USED FOR UNKNOWN INDICATION
     Dosage: (UNK UNK, TWICE DAILY)
     Route: 065
     Dates: start: 20190317
  2. AZITHROMYCIN ANHYDROUS. [Suspect]
     Active Substance: AZITHROMYCIN ANHYDROUS
     Indication: PRODUCT USED FOR UNKNOWN INDICATION
     Dosage: (UNK UNK, UNKNOWN FREQ.)
     Route: 065

REACTIONS (3)
  - Pharyngeal swelling [Unknown]
  - Conjunctivitis [Unknown]
  - Drug interaction [Unknown]
